FAERS Safety Report 7210311-2 (Version None)
Quarter: 2011Q1

REPORT INFORMATION
  Report Type: 
  Country: None (occurrence: None)
  Receive Date: 20110105
  Receipt Date: 20101229
  Transmission Date: 20110831
  Serious: Yes (Other)
  Sender: FDA-Public Use
  Company Number: US-AMGEN-USASP2010012375

PATIENT

DRUGS (2)
  1. ENBREL [Suspect]
     Indication: PSORIATIC ARTHROPATHY
  2. ENBREL [Suspect]
     Indication: PSORIASIS
     Dosage: 25 MG, 2 TIMES/WK
     Dates: start: 20030901, end: 20101001

REACTIONS (5)
  - JOINT SWELLING [None]
  - ARTHRITIS [None]
  - PSORIASIS [None]
  - MYELOFIBROSIS [None]
  - INFECTIOUS MONONUCLEOSIS [None]
